FAERS Safety Report 8326956-2 (Version None)
Quarter: 2012Q2

REPORT INFORMATION
  Report Type: 
  Country: None (occurrence: None)
  Receive Date: 20120501
  Receipt Date: 20120427
  Transmission Date: 20120825
  Serious: Yes (Hospitalization, Other)
  Sender: FDA-Public Use
  Company Number: US-ABBOTT-12P-163-0930989-00

PATIENT
  Sex: Female
  Weight: 76.272 kg

DRUGS (7)
  1. SYNTHROID [Suspect]
     Indication: HYPOTHYROIDISM
  2. HUMIRA [Suspect]
     Indication: RHEUMATOID ARTHRITIS
     Dates: start: 20050101, end: 20070101
  3. SINGULAIR [Concomitant]
     Indication: HYPERSENSITIVITY
  4. NASANEX [Concomitant]
     Indication: HYPERSENSITIVITY
  5. SIMBICORT [Concomitant]
     Indication: HYPERSENSITIVITY
  6. SINGULAIR [Concomitant]
     Indication: SINUS DISORDER
  7. ALBUTEROL [Concomitant]
     Indication: ASTHMA
     Dosage: NEBULIZER

REACTIONS (3)
  - NASAL POLYPS [None]
  - SINUSITIS [None]
  - ABORTION SPONTANEOUS [None]
